FAERS Safety Report 15280605 (Version 2)
Quarter: 2018Q3

REPORT INFORMATION
  Report Type: Report from Study
  Country: GR (occurrence: GR)
  Receive Date: 20180815
  Receipt Date: 20180829
  Transmission Date: 20181010
  Serious: Yes (Death, Hospitalization, Other)
  Sender: FDA-Public Use
  Company Number: GR-JNJFOC-20180802670

PATIENT
  Age: 59 Year
  Sex: Female
  Weight: 40 kg

DRUGS (1)
  1. TRABECTEDIN [Suspect]
     Active Substance: TRABECTEDIN
     Indication: SOFT TISSUE SARCOMA
     Dosage: 24?HOUR INFUSION
     Route: 042
     Dates: start: 20171127

REACTIONS (3)
  - Pneumonia [Recovered/Resolved with Sequelae]
  - Cardiopulmonary failure [Fatal]
  - Anaemia [Recovered/Resolved with Sequelae]

NARRATIVE: CASE EVENT DATE: 20180729
